FAERS Safety Report 25984724 (Version 3)
Quarter: 2025Q4

REPORT INFORMATION
  Report Type: Spontaneous
  Country: EU (occurrence: EU)
  Receive Date: 20251031
  Receipt Date: 20251113
  Transmission Date: 20260117
  Serious: Yes (Hospitalization)
  Sender: PFIZER
  Company Number: EU-PFM-2025-05130

PATIENT
  Age: 71 Year
  Sex: Male

DRUGS (4)
  1. ENCORAFENIB [Suspect]
     Active Substance: ENCORAFENIB
     Indication: Lung neoplasm malignant
     Dosage: 450 MG, QD (1/DAY)
     Route: 065
     Dates: start: 20251016, end: 20251022
  2. ENCORAFENIB [Suspect]
     Active Substance: ENCORAFENIB
     Dosage: 300 MG, QD (1/DAY)
     Route: 065
     Dates: start: 20251022
  3. BINIMETINIB [Suspect]
     Active Substance: BINIMETINIB
     Indication: Lung neoplasm malignant
     Dosage: 135 MG, BID (2/DAY)
     Route: 065
     Dates: start: 20251016, end: 20251022
  4. ACETAZOLAMIDE [Concomitant]
     Active Substance: ACETAZOLAMIDE
     Indication: Intracranial pressure increased
     Dosage: UNK
     Route: 065
     Dates: end: 20251022

REACTIONS (7)
  - Somnolence [Recovering/Resolving]
  - Neurological decompensation [Recovering/Resolving]
  - Confusional state [Recovering/Resolving]
  - Diarrhoea [Unknown]
  - Blood creatinine increased [Unknown]
  - Accidental overdose [Unknown]
  - Incorrect dose administered [Unknown]

NARRATIVE: CASE EVENT DATE: 20250101
